FAERS Safety Report 21916285 (Version 5)
Quarter: 2023Q1

REPORT INFORMATION
  Report Type: Spontaneous
  Country: US (occurrence: US)
  Receive Date: 20230126
  Receipt Date: 20230331
  Transmission Date: 20230418
  Serious: No
  Sender: FDA-Public Use
  Company Number: US-PFIZER INC-PV202200130848

PATIENT
  Age: 7 Year
  Sex: Female
  Weight: 16.42 kg

DRUGS (1)
  1. GENOTROPIN [Suspect]
     Active Substance: SOMATROPIN
     Indication: Turner^s syndrome
     Dosage: 0.9 MG, 1X/DAY
     Dates: start: 20221214

REACTIONS (5)
  - Incorrect dosage administered [Unknown]
  - Wrong technique in device usage process [Unknown]
  - Device issue [Unknown]
  - Device physical property issue [Unknown]
  - Injection site pain [Unknown]
